FAERS Safety Report 13904777 (Version 1)
Quarter: 2017Q3

REPORT INFORMATION
  Report Type: Spontaneous
  Country: US (occurrence: US)
  Receive Date: 20170824
  Receipt Date: 20170824
  Transmission Date: 20171127
  Serious: Yes (Disabling)
  Sender: FDA-Public Use
  Company Number: None

PATIENT
  Weight: 68.85 kg

DRUGS (6)
  1. ZOLPIDEM [Concomitant]
     Active Substance: ZOLPIDEM\ZOLPIDEM TARTRATE
  2. XANAX [Concomitant]
     Active Substance: ALPRAZOLAM
  3. BOTOX [Suspect]
     Active Substance: ONABOTULINUMTOXINA
     Indication: MIGRAINE
     Route: 058
     Dates: start: 20160621
  4. CLONAZEPAM. [Concomitant]
     Active Substance: CLONAZEPAM
  5. IBPROFIN [Concomitant]
  6. TYLENOL [Concomitant]
     Active Substance: ACETAMINOPHEN

REACTIONS (12)
  - Aphasia [None]
  - Dysphemia [None]
  - Sinus disorder [None]
  - Dizziness [None]
  - Mastication disorder [None]
  - Eyelid disorder [None]
  - Musculoskeletal stiffness [None]
  - Thinking abnormal [None]
  - Muscular weakness [None]
  - Reading disorder [None]
  - Muscle spasms [None]
  - Confusional state [None]

NARRATIVE: CASE EVENT DATE: 20170624
